FAERS Safety Report 8777959 (Version 1)
Quarter: 2012Q4

REPORT INFORMATION
  Report Type: 
  Country: IT (occurrence: IT)
  Receive Date: 20120912
  Receipt Date: 20120912
  Transmission Date: 20130627
  Serious: Yes (Other)
  Sender: FDA-Public Use
  Company Number: PHHY2012IT078631

PATIENT
  Age: 18 Year
  Sex: Female

DRUGS (1)
  1. CLARITHROMYCIN [Suspect]
     Indication: PHARYNGITIS
     Dosage: 250 mg, total
     Route: 048
     Dates: start: 20120903, end: 20120903

REACTIONS (2)
  - Lip oedema [Recovering/Resolving]
  - Rash [Recovering/Resolving]
